FAERS Safety Report 11733318 (Version 1)
Quarter: 2015Q4

REPORT INFORMATION
  Report Type: Spontaneous
  Country: US (occurrence: US)
  Receive Date: 20151113
  Receipt Date: 20151113
  Transmission Date: 20160304
  Serious: Yes (Other)
  Sender: FDA-Public Use
  Company Number: US-ROCHE-1659675

PATIENT
  Sex: Female

DRUGS (23)
  1. NEURONTIN [Suspect]
     Active Substance: GABAPENTIN
     Indication: PRODUCT USED FOR UNKNOWN INDICATION
     Route: 065
  2. DARVOCET [Concomitant]
     Active Substance: ACETAMINOPHEN\PROPOXYPHENE HYDROCHLORIDE
  3. NEXIUM [Concomitant]
     Active Substance: ESOMEPRAZOLE MAGNESIUM
  4. FAMITINE [Concomitant]
  5. NASOCORT [Concomitant]
     Active Substance: BUDESONIDE
  6. ATENOLOL. [Concomitant]
     Active Substance: ATENOLOL
  7. NORVASC [Concomitant]
     Active Substance: AMLODIPINE BESYLATE
  8. SYNTHROID [Concomitant]
     Active Substance: LEVOTHYROXINE SODIUM
  9. TIKOSYN [Suspect]
     Active Substance: DOFETILIDE
     Indication: PRODUCT USED FOR UNKNOWN INDICATION
     Route: 065
  10. QVAR [Concomitant]
     Active Substance: BECLOMETHASONE DIPROPIONATE
  11. PRAVASTATIN [Concomitant]
     Active Substance: PRAVASTATIN\PRAVASTATIN SODIUM
  12. VICODIN [Concomitant]
     Active Substance: ACETAMINOPHEN\HYDROCODONE BITARTRATE
  13. MOXIFLOXACIN. [Concomitant]
     Active Substance: MOXIFLOXACIN
  14. FLEXERIL [Concomitant]
     Active Substance: CYCLOBENZAPRINE HYDROCHLORIDE
  15. REVATIO [Suspect]
     Active Substance: SILDENAFIL CITRATE
     Indication: PRODUCT USED FOR UNKNOWN INDICATION
     Route: 048
  16. ALDACTONE [Suspect]
     Active Substance: SPIRONOLACTONE
     Indication: PRODUCT USED FOR UNKNOWN INDICATION
     Route: 065
  17. NORCO [Concomitant]
     Active Substance: ACETAMINOPHEN\HYDROCODONE BITARTRATE
  18. FLONASE (UNITED STATES) [Concomitant]
  19. COREX [Concomitant]
  20. VALIUM [Suspect]
     Active Substance: DIAZEPAM
     Indication: PRODUCT USED FOR UNKNOWN INDICATION
     Route: 065
  21. XARELTO [Concomitant]
     Active Substance: RIVAROXABAN
  22. MACRODANTIN [Concomitant]
     Active Substance: NITROFURANTOIN
  23. LASIX [Concomitant]
     Active Substance: FUROSEMIDE

REACTIONS (2)
  - Pulmonary hypertension [Unknown]
  - Hypersensitivity [Unknown]
